FAERS Safety Report 26035229 (Version 1)
Quarter: 2025Q4

REPORT INFORMATION
  Report Type: Spontaneous
  Country: US (occurrence: US)
  Receive Date: 20251112
  Receipt Date: 20251112
  Transmission Date: 20260117
  Serious: No
  Sender: VERTEX
  Company Number: US-VERTEX PHARMACEUTICALS-2025-015579

PATIENT
  Sex: Female

DRUGS (1)
  1. ALYFTREK [Suspect]
     Active Substance: DEUTIVACAFTOR\TEZACAFTOR\VANZACAFTOR
     Indication: Cystic fibrosis
     Dosage: 4 MG VANZACAFTOR / 20 MG TEZACAFTOR / 50 MG DEUTIVACAFTOR
     Route: 048
     Dates: start: 20250125

REACTIONS (2)
  - Pneumonia staphylococcal [Not Recovered/Not Resolved]
  - Cystic fibrosis related diabetes [Not Recovered/Not Resolved]

NARRATIVE: CASE EVENT DATE: 20250101
